FAERS Safety Report 9971086 (Version 1)
Quarter: 2014Q1

REPORT INFORMATION
  Report Type: Report from Study
  Country: US (occurrence: US)
  Receive Date: 20140306
  Receipt Date: 20140306
  Transmission Date: 20141002
  Serious: No
  Sender: FDA-Public Use
  Company Number: US-ABBVIE-13P-163-1149306-00

PATIENT
  Age: 40 Year
  Sex: Female

DRUGS (7)
  1. HUMIRA [Suspect]
     Indication: PSORIASIS
     Dates: start: 201305
  2. ZIAC [Concomitant]
     Indication: HYPERTENSION
     Dosage: 6.25 MG DAILY
  3. CELEBREX [Concomitant]
     Indication: PSORIATIC ARTHROPATHY
  4. CELEBREX [Concomitant]
     Indication: FIBROMYALGIA
  5. MOBIC [Concomitant]
     Indication: PSORIATIC ARTHROPATHY
  6. MOBIC [Concomitant]
     Indication: FIBROMYALGIA
  7. MACROBID [Concomitant]
     Indication: PRODUCT USED FOR UNKNOWN INDICATION

REACTIONS (5)
  - Device malfunction [Unknown]
  - Injection site pain [Not Recovered/Not Resolved]
  - Device malfunction [Unknown]
  - Psoriasis [Not Recovered/Not Resolved]
  - Drug dose omission [Unknown]
